FAERS Safety Report 4527748-2 (Version None)
Quarter: 2004Q4

REPORT INFORMATION
  Report Type: 
  Country: None (occurrence: None)
  Receive Date: 20041123
  Receipt Date: 20031008
  Transmission Date: 20050328
  Serious: Yes (Other)
  Sender: FDA-Public Use
  Company Number: 2003034648

PATIENT
  Sex: Male
  Weight: 88.905 kg

DRUGS (5)
  1. LIPITOR [Suspect]
     Indication: BLOOD CHOLESTEROL INCREASED
     Dosage: 10 MG (DAILY), ORAL
     Route: 048
     Dates: start: 20030101
  2. METOPROLOL TARTRATE [Concomitant]
  3. BUDESONIDE (BUDESONIDE) [Concomitant]
  4. LISINOPRIL [Concomitant]
  5. LEVOTHYROXINE SODIUM [Concomitant]

REACTIONS (4)
  - CONSTIPATION [None]
  - DYSPEPSIA [None]
  - FAECES DISCOLOURED [None]
  - PLATELET COUNT DECREASED [None]
